FAERS Safety Report 21788354 (Version 1)
Quarter: 2022Q4

REPORT INFORMATION
  Report Type: Spontaneous
  Country: US (occurrence: US)
  Receive Date: 20221228
  Receipt Date: 20221228
  Transmission Date: 20230112
  Serious: No
  Sender: FDA-Public Use
  Company Number: US-PFIZER INC-202201393507

PATIENT
  Age: 90 Year
  Sex: Female
  Weight: 70.31 kg

DRUGS (7)
  1. PAXLOVID [Suspect]
     Active Substance: NIRMATRELVIR\RITONAVIR
     Indication: COVID-19 treatment
     Dosage: 3 DF, 2X/DAY (GOLD IS FOR MORNING CONTAINING 3 PILLS, SILVER IS FOR EVENING HAVING 3 PILLS)
     Dates: start: 20221221
  2. HYDRALAZINE HCL [Concomitant]
     Active Substance: HYDRALAZINE HYDROCHLORIDE
     Indication: Hypertension
     Dosage: 25 MG
  3. TRAVOPROST [Concomitant]
     Active Substance: TRAVOPROST
     Indication: Glaucoma
     Dosage: UNK
  4. FAMOTIDINE [Concomitant]
     Active Substance: FAMOTIDINE
     Indication: Dyspepsia
     Dosage: UNK
  5. VITAMIN D NOS [Concomitant]
     Active Substance: VITAMIN D NOS
     Dosage: UNK
  6. LEVOTHYROXINE [Concomitant]
     Active Substance: LEVOTHYROXINE
     Dosage: UNK, ALTERNATE DAY(1 PILL A DAY ALTERNATING WITH 1 AND A HALF PILLS)
  7. LEVOTHYROXINE [Concomitant]
     Active Substance: LEVOTHYROXINE
     Dosage: 1 DF, DAILY (1 PILL A DAY)

REACTIONS (2)
  - Abdominal discomfort [Recovered/Resolved]
  - Taste disorder [Not Recovered/Not Resolved]

NARRATIVE: CASE EVENT DATE: 20221221
